FAERS Safety Report 9720036 (Version 1)
Quarter: 2013Q4

REPORT INFORMATION
  Report Type: Spontaneous
  Country: US (occurrence: US)
  Receive Date: 20131128
  Receipt Date: 20131128
  Transmission Date: 20140711
  Serious: Yes (Other)
  Sender: FDA-Public Use
  Company Number: US-BRISTOL-MYERS SQUIBB COMPANY-19832765

PATIENT
  Age: 63 Year
  Sex: Male
  Weight: 85.26 kg

DRUGS (3)
  1. HYDROXYUREA [Suspect]
     Indication: PLATELET COUNT INCREASED
     Dosage: 1DF: TWO 500 MG CAPS EVERY NIGHT
  2. PRAVACHOL [Concomitant]
  3. LISINOPRIL [Concomitant]

REACTIONS (3)
  - Prostate cancer [Unknown]
  - Urinary incontinence [Unknown]
  - Off label use [Unknown]
